FAERS Safety Report 5669951-4 (Version None)
Quarter: 2008Q1

REPORT INFORMATION
  Report Type: 
  Country: None (occurrence: None)
  Receive Date: 20080317
  Receipt Date: 20080310
  Transmission Date: 20080703
  Serious: Yes (Hospitalization)
  Sender: FDA-Public Use
  Company Number: BR-ABBOTT-08P-020-0439364-00

PATIENT
  Age: 35 Year
  Sex: Male
  Weight: 65 kg

DRUGS (7)
  1. KALETRA [Suspect]
     Indication: HIV INFECTION
     Route: 048
     Dates: start: 20040501, end: 20071201
  2. KALETRA [Suspect]
     Indication: HIV INFECTION
     Route: 048
     Dates: start: 20071201
  3. ZIDOVUDINE [Suspect]
     Indication: HIV INFECTION
  4. LAMIVUDINE [Concomitant]
     Indication: HIV INFECTION
  5. TENOFOVIR [Concomitant]
     Indication: HIV INFECTION
  6. CLINDAMYCIN AND PYRIMETHAMINE [Concomitant]
     Indication: TOXOPLASMOSIS
  7. FOLIC ACID [Concomitant]
     Indication: DRUG USE FOR UNKNOWN INDICATION

REACTIONS (5)
  - ANAEMIA [None]
  - ECCHYMOSIS [None]
  - GINGIVAL BLEEDING [None]
  - NEUTROPHILIA [None]
  - SKIN HAEMORRHAGE [None]
